FAERS Safety Report 8003772-2 (Version None)
Quarter: 2011Q4

REPORT INFORMATION
  Report Type: 
  Country: None (occurrence: None)
  Receive Date: 20111222
  Receipt Date: 20111219
  Transmission Date: 20120403
  Serious: Yes (Hospitalization)
  Sender: FDA-Public Use
  Company Number: US-US-EMD SERONO, INC.-7102545

PATIENT
  Sex: Female

DRUGS (1)
  1. REBIF [Suspect]
     Indication: PRODUCT USED FOR UNKNOWN INDICATION
     Route: 058
     Dates: start: 20111019

REACTIONS (5)
  - CONVULSION [None]
  - INJECTION SITE PAIN [None]
  - TONGUE INJURY [None]
  - MYALGIA [None]
  - INFLUENZA LIKE ILLNESS [None]
